FAERS Safety Report 9909642 (Version 1)
Quarter: 2014Q1

REPORT INFORMATION
  Report Type: Spontaneous
  Country: FR (occurrence: FR)
  Receive Date: 20140219
  Receipt Date: 20140219
  Transmission Date: 20141002
  Serious: Yes (Hospitalization)
  Sender: FDA-Public Use
  Company Number: FR-GLAXOSMITHKLINE-B0967587A

PATIENT
  Age: 30 Year
  Sex: Female

DRUGS (12)
  1. ZELITREX [Suspect]
     Indication: HUMAN HERPESVIRUS 6 INFECTION
     Route: 048
     Dates: start: 20131028, end: 20131128
  2. BACTRIM [Suspect]
     Indication: PROPHYLAXIS
     Route: 048
  3. FOSCAVIR [Suspect]
     Indication: INFECTION
     Route: 042
     Dates: start: 20131106, end: 20131127
  4. NEORAL [Suspect]
     Indication: BONE MARROW TRANSPLANT
     Route: 048
  5. DOLIPRANE [Concomitant]
     Indication: PAIN
     Route: 048
  6. SODIUM BICARBONATE [Concomitant]
     Route: 048
  7. ALINIA [Concomitant]
     Dosage: 1G TWICE PER DAY
     Route: 048
  8. TIORFAN [Concomitant]
     Indication: DIARRHOEA
     Route: 048
  9. OMEPRAZOLE [Concomitant]
     Route: 048
     Dates: start: 20131009
  10. ORACILLINE [Concomitant]
     Route: 048
  11. DELURSAN [Concomitant]
     Route: 048
  12. VALGANCICLOVIR HYDROCHLORIDE [Concomitant]
     Dates: start: 201311

REACTIONS (2)
  - Renal failure acute [Recovered/Resolved with Sequelae]
  - Drug interaction [Unknown]
